FAERS Safety Report 8894946 (Version 1)
Quarter: 2012Q4

REPORT INFORMATION
  Report Type: 
  Country: US (occurrence: US)
  Receive Date: 20121107
  Receipt Date: 20121107
  Transmission Date: 20130627
  Serious: Yes (Other)
  Sender: FDA-Public Use
  Company Number: US-AMGEN-USASP2011048408

PATIENT
  Age: 47 Year
  Sex: Female

DRUGS (4)
  1. ENBREL [Suspect]
     Indication: PSORIASIS
     Dosage: 50 mg, qwk
     Dates: start: 20030101, end: 2004
  2. ENBREL [Suspect]
     Indication: PSORIATIC ARTHROPATHY
     Dosage: UNK
     Dates: start: 201109, end: 201112
  3. HUMIRA [Concomitant]
     Dosage: UNK
  4. REMICADE [Concomitant]
     Dosage: UNK

REACTIONS (10)
  - Infected skin ulcer [Recovered/Resolved]
  - Staphylococcal infection [Recovered/Resolved]
  - Dyspnoea [Recovered/Resolved]
  - Psoriatic arthropathy [Not Recovered/Not Resolved]
  - Pain in extremity [Not Recovered/Not Resolved]
  - Arthralgia [Not Recovered/Not Resolved]
  - Psoriasis [Not Recovered/Not Resolved]
  - Drug ineffective [Not Recovered/Not Resolved]
  - Injection site pain [Recovered/Resolved]
  - Injection site haemorrhage [Recovered/Resolved]
